FAERS Safety Report 8510453-5 (Version None)
Quarter: 2012Q3

REPORT INFORMATION
  Report Type: 
  Country: None (occurrence: None)
  Receive Date: 20120715
  Receipt Date: 20100106
  Transmission Date: 20120928
  Serious: Yes (Hospitalization, Other)
  Sender: FDA-Public Use
  Company Number: PHHY2009CA32882

PATIENT
  Sex: Male

DRUGS (2)
  1. SANDOSTATIN LAR [Suspect]
     Indication: LUNG NEOPLASM MALIGNANT
     Dosage: 20 MG, EVERY 4 WEEKS
     Route: 030
     Dates: start: 20090408
  2. SANDOSTATIN [Suspect]
     Dosage: 100 UG, TID
     Route: 058
     Dates: start: 20090618

REACTIONS (9)
  - VOMITING [None]
  - METASTASIS [None]
  - FLUSHING [None]
  - PULMONARY THROMBOSIS [None]
  - METASTASES TO LYMPH NODES [None]
  - DRUG INEFFECTIVE [None]
  - PAIN [None]
  - EATING DISORDER [None]
  - DIARRHOEA [None]
